FAERS Safety Report 10735803 (Version 2)
Quarter: 2015Q1

REPORT INFORMATION
  Report Type: Report from Study
  Country: US (occurrence: US)
  Receive Date: 20150126
  Receipt Date: 20150213
  Transmission Date: 20150721
  Serious: No
  Sender: FDA-Public Use
  Company Number: US-BIOGENIDEC-2015BI004872

PATIENT
  Sex: Female

DRUGS (1)
  1. TECFIDERA [Suspect]
     Active Substance: DIMETHYL FUMARATE
     Indication: MULTIPLE SCLEROSIS
     Dates: start: 20140303

REACTIONS (9)
  - General symptom [Unknown]
  - Dehydration [Unknown]
  - Weight increased [Unknown]
  - Asthenia [Unknown]
  - Red blood cell count decreased [Unknown]
  - Infection [Unknown]
  - Vomiting [Unknown]
  - White blood cell count increased [Unknown]
  - Arthropathy [Unknown]
